FAERS Safety Report 17482553 (Version 1)
Quarter: 2020Q1

REPORT INFORMATION
  Report Type: Spontaneous
  Country: CA (occurrence: CA)
  Receive Date: 20200302
  Receipt Date: 20200302
  Transmission Date: 20200409
  Serious: Yes (Other)
  Sender: FDA-Public Use
  Company Number: CA-PFIZER INC-2020088471

PATIENT
  Age: 24 Year
  Sex: Female

DRUGS (5)
  1. HUMIRA [Suspect]
     Active Substance: ADALIMUMAB
     Indication: CROHN^S DISEASE
     Dosage: UNK
     Route: 058
  2. AZATHIOPRINE. [Concomitant]
     Active Substance: AZATHIOPRINE
     Dosage: UNK
  3. METHOTREXATE SODIUM. [Suspect]
     Active Substance: METHOTREXATE SODIUM
     Dosage: UNK
     Route: 065
  4. AZITHROMYCIN ANHYDROUS. [Suspect]
     Active Substance: AZITHROMYCIN ANHYDROUS
     Dosage: UNK
     Route: 065
  5. PREDNISONE. [Concomitant]
     Active Substance: PREDNISONE
     Dosage: UNK

REACTIONS (13)
  - Abscess [Unknown]
  - Anaemia [Unknown]
  - Diarrhoea [Unknown]
  - Anal abscess [Unknown]
  - Gastrooesophageal reflux disease [Unknown]
  - Fistula [Unknown]
  - General physical health deterioration [Unknown]
  - Arthralgia [Unknown]
  - Post-traumatic stress disorder [Unknown]
  - Therapeutic product effect decreased [Unknown]
  - Abdominal pain [Unknown]
  - Bipolar II disorder [Unknown]
  - Hypothyroidism [Unknown]
